FAERS Safety Report 16590864 (Version 1)
Quarter: 2019Q3

REPORT INFORMATION
  Report Type: Spontaneous
  Country: US (occurrence: US)
  Receive Date: 20190718
  Receipt Date: 20190718
  Transmission Date: 20191004
  Serious: Yes (Other)
  Sender: FDA-Public Use
  Company Number: US-PFIZER INC-2019301107

PATIENT
  Age: 69 Year
  Sex: Male

DRUGS (1)
  1. GENOTROPIN MQ [Suspect]
     Active Substance: SOMATROPIN
     Dosage: 0.8 MG, 1X/DAY
     Route: 058

REACTIONS (4)
  - Pain in extremity [Unknown]
  - Back pain [Unknown]
  - Lyme disease [Unknown]
  - Intentional product misuse [Unknown]
